FAERS Safety Report 7277487-2 (Version None)
Quarter: 2011Q1

REPORT INFORMATION
  Report Type: 
  Country: None (occurrence: None)
  Receive Date: 20110207
  Receipt Date: 20110124
  Transmission Date: 20110831
  Serious: Yes (Hospitalization, Other)
  Sender: FDA-Public Use
  Company Number: US-ELI_LILLY_AND_COMPANY-US201012001632

PATIENT
  Sex: Female

DRUGS (30)
  1. FOLIC ACID [Concomitant]
  2. DIAZEPAM [Concomitant]
  3. BENICAR [Concomitant]
  4. RESTASIS [Concomitant]
  5. NITROFURANTOIN [Concomitant]
  6. POLYETHYLENE GLYCOL [Concomitant]
  7. LAMOTRIGINE [Concomitant]
  8. LEXAPRO [Concomitant]
  9. FORTEO [Suspect]
     Indication: OSTEOPOROSIS
     Dosage: 20 UG, DAILY (1/D)
     Dates: start: 20101108
  10. OXYCONTIN [Concomitant]
     Dosage: UNK, 2/D
  11. RELAFEN [Concomitant]
  12. ASPIRIN [Concomitant]
     Dosage: 81 MG, UNK
  13. SPIRIVA [Concomitant]
  14. PREDNISONE [Concomitant]
  15. FUROSEMIDE [Concomitant]
  16. POTASSIUM [Concomitant]
  17. ACYCLOVIR [Concomitant]
  18. FORTEO [Suspect]
     Dosage: 20 UG, DAILY (1/D)
     Dates: end: 20110103
  19. GABAPENTIN [Concomitant]
  20. ADDERALL 10 [Concomitant]
  21. ZOLPIDEM [Concomitant]
  22. REMICADE [Concomitant]
     Dosage: UNK, EVERY 8 WEEKS
  23. PILOCARPINE [Concomitant]
  24. METAMUCIL-2 [Concomitant]
  25. METHOTREXATE [Concomitant]
  26. PROPRANOLOL [Concomitant]
  27. OXYCONTIN [Concomitant]
     Dosage: 20 MG, 3/D
  28. OXYCONTIN [Concomitant]
     Dosage: 40 MG, 3/D
  29. SIMVASTATIN [Concomitant]
  30. LOTEMAX [Concomitant]

REACTIONS (8)
  - PELVIC FRACTURE [None]
  - TRANSIENT ISCHAEMIC ATTACK [None]
  - EXPIRED DRUG ADMINISTERED [None]
  - DELUSION [None]
  - PAIN [None]
  - COGNITIVE DISORDER [None]
  - ANXIETY [None]
  - DELIRIUM [None]
